FAERS Safety Report 4999395-X (Version None)
Quarter: 2006Q2

REPORT INFORMATION
  Report Type: 
  Country: None (occurrence: None)
  Receive Date: 20060509
  Receipt Date: 20060509
  Transmission Date: 20061013
  Serious: No
  Sender: FDA-Public Use
  Company Number: None

PATIENT
  Age: 42 Year
  Sex: Male
  Weight: 100 kg

DRUGS (4)
  1. GENTAMICIN [Suspect]
     Indication: ENDOCARDITIS
     Dosage: 100MG  IV  Q 8 HOURS
     Route: 042
     Dates: start: 20050912, end: 20050916
  2. VANCOMYCIN [Concomitant]
  3. HYDROCHLOROTHIAZIDE [Concomitant]
  4. APAP TAB [Concomitant]

REACTIONS (2)
  - DRUG TOXICITY [None]
  - RENAL FAILURE ACUTE [None]
